FAERS Safety Report 8244116 (Version 7)
Quarter: 2013Q2

REPORT INFORMATION
  Report Type: Spontaneous
  Country: US (occurrence: US)
  Receive Date: 20111115
  Receipt Date: 20130401
  Transmission Date: 20140414
  Serious: Yes (Hospitalization)
  Sender: FDA-Public Use
  Company Number: US-BIOGENIDEC-2011BI042389

PATIENT
  Age: 62 Year
  Sex: Female
  Weight: 93 kg

DRUGS (6)
  1. TYSABRI [Suspect]
     Indication: MULTIPLE SCLEROSIS
     Route: 042
     Dates: start: 20080721, end: 20111019
  2. LYRICA [Concomitant]
  3. ZANAFLEX [Concomitant]
  4. NEURONTIN [Concomitant]
  5. BACLOFEN [Concomitant]
  6. AMBIEN [Concomitant]

REACTIONS (3)
  - Progressive multifocal leukoencephalopathy [Not Recovered/Not Resolved]
  - Blood pressure increased [Unknown]
  - Headache [Unknown]
